FAERS Safety Report 7515249-9 (Version None)
Quarter: 2011Q2

REPORT INFORMATION
  Report Type: 
  Country: None (occurrence: None)
  Receive Date: 20110601
  Receipt Date: 20100609
  Transmission Date: 20111010
  Serious: Yes (Other)
  Sender: FDA-Public Use
  Company Number: US-PFIZER INC-2010073065

PATIENT
  Sex: Female
  Weight: 55.329 kg

DRUGS (4)
  1. NAPROXEN [Concomitant]
     Indication: INFLAMMATION
     Dosage: UNK
  2. CHANTIX [Suspect]
     Indication: SMOKING CESSATION THERAPY
     Dosage: 0.5 MG, 1X/DAY
     Route: 048
     Dates: start: 20070101, end: 20070101
  3. CHANTIX [Suspect]
     Dosage: 0.5 MG, 2X/DAY
     Route: 048
     Dates: start: 20070101
  4. PREVACID [Concomitant]
     Indication: GASTROOESOPHAGEAL REFLUX DISEASE
     Dosage: UNK

REACTIONS (3)
  - ANGER [None]
  - CHEST DISCOMFORT [None]
  - SWELLING [None]
